FAERS Safety Report 9971671 (Version 1)
Quarter: 2014Q1

REPORT INFORMATION
  Report Type: Report from Study
  Country: US (occurrence: US)
  Receive Date: 20140306
  Receipt Date: 20140306
  Transmission Date: 20141002
  Serious: No
  Sender: FDA-Public Use
  Company Number: US-ABBVIE-13P-163-1153560-00

PATIENT
  Sex: Male
  Weight: 69.46 kg

DRUGS (3)
  1. HUMIRA [Suspect]
     Indication: SPONDYLOARTHROPATHY
     Dates: start: 2008, end: 2013
  2. REMICADE [Suspect]
     Indication: ANKYLOSING SPONDYLITIS
     Dates: start: 201306, end: 201308
  3. BENAZEPRIL [Concomitant]
     Indication: HYPERTENSION

REACTIONS (5)
  - Ankylosing spondylitis [Not Recovered/Not Resolved]
  - Drug ineffective [Unknown]
  - Disease progression [Not Recovered/Not Resolved]
  - Weight decreased [Not Recovered/Not Resolved]
  - Back pain [Not Recovered/Not Resolved]
